FAERS Safety Report 4382368-8 (Version None)
Quarter: 2004Q2

REPORT INFORMATION
  Report Type: 
  Country: None (occurrence: None)
  Receive Date: 20040615
  Receipt Date: 20040608
  Transmission Date: 20050107
  Serious: Yes (Hospitalization, Other)
  Sender: FDA-Public Use
  Company Number: 102104

PATIENT
  Age: 7 Year
  Sex: Female
  Weight: 16.8 kg

DRUGS (1)
  1. NUTROPIN AQ [Suspect]
     Indication: GROWTH HORMONE DEFICIENCY
     Dosage: 0.9 MG, QD, SUBCUTANEOUS
     Route: 058
     Dates: start: 20000714, end: 20010501

REACTIONS (1)
  - DIABETES MELLITUS INSULIN-DEPENDENT [None]
